FAERS Safety Report 14296622 (Version 1)
Quarter: 2017Q4

REPORT INFORMATION
  Report Type: Spontaneous
  Country: GR (occurrence: GR)
  Receive Date: 20171218
  Receipt Date: 20171218
  Transmission Date: 20180321
  Serious: Yes (Life-Threatening, Other)
  Sender: FDA-Public Use
  Company Number: GR-JNJFOC-20171209881

PATIENT
  Age: 30 Year
  Sex: Male

DRUGS (2)
  1. PALIPERIDONE PALMITATE [Suspect]
     Active Substance: PALIPERIDONE PALMITATE
     Indication: SCHIZOPHRENIA
     Route: 030
  2. HALOEPRIDOL [Suspect]
     Active Substance: HALOPERIDOL
     Indication: AGITATION
     Route: 042

REACTIONS (3)
  - Off label use [Unknown]
  - Angioedema [Unknown]
  - Incorrect route of drug administration [Unknown]
